FAERS Safety Report 9981719 (Version 1)
Quarter: 2014Q1

REPORT INFORMATION
  Report Type: Report from Study
  Country: US (occurrence: US)
  Receive Date: 20140307
  Receipt Date: 20140307
  Transmission Date: 20141002
  Serious: No
  Sender: FDA-Public Use
  Company Number: US-ABBVIE-13P-163-1181974-00

PATIENT
  Age: 41 Year
  Sex: Female
  Weight: 86.26 kg

DRUGS (7)
  1. HUMIRA [Suspect]
     Indication: CROHN^S DISEASE
     Dates: start: 201309, end: 201309
  2. HUMIRA [Suspect]
     Dates: start: 2013, end: 2013
  3. HUMIRA [Suspect]
     Dates: start: 2013
  4. PAXIL [Concomitant]
     Indication: ANXIETY
  5. MULTIVITAMIN [Concomitant]
     Indication: VITAMIN SUPPLEMENTATION
  6. NEXIUM [Concomitant]
     Indication: GASTROOESOPHAGEAL REFLUX DISEASE
  7. CALCIUM [Concomitant]
     Indication: MINERAL SUPPLEMENTATION

REACTIONS (3)
  - Weight increased [Not Recovered/Not Resolved]
  - Crohn^s disease [Not Recovered/Not Resolved]
  - Hyperphagia [Unknown]
